FAERS Safety Report 9379278 (Version 1)
Quarter: 2013Q2

REPORT INFORMATION
  Report Type: Spontaneous
  Country: US (occurrence: None)
  Receive Date: 20130626
  Receipt Date: 20130626
  Transmission Date: 20140414
  Serious: No
  Sender: FDA-Public Use
  Company Number: CC 13-0455

PATIENT
  Age: 39 Year
  Sex: Female
  Weight: 68.04 kg

DRUGS (3)
  1. METRONIDAZOLE [Suspect]
     Indication: VAGINAL DISORDER
     Dosage: ONCE DAILY
     Dates: start: 20130420, end: 20130421
  2. DILTIAZEM [Concomitant]
  3. BENICAR [Concomitant]

REACTIONS (4)
  - Headache [None]
  - Dizziness [None]
  - Nausea [None]
  - Asthenia [None]
